FAERS Safety Report 5373384-8 (Version None)
Quarter: 2007Q2

REPORT INFORMATION
  Report Type: 
  Country: None (occurrence: None)
  Receive Date: 20070628
  Receipt Date: 20070619
  Transmission Date: 20071010
  Serious: Yes (Hospitalization)
  Sender: FDA-Public Use
  Company Number: US-JNJFOC-20070204674

PATIENT
  Sex: Male
  Weight: 102.06 kg

DRUGS (15)
  1. INVEGA [Suspect]
     Indication: ANXIETY
     Route: 048
  2. INVEGA [Suspect]
     Indication: BIPOLAR DISORDER
     Route: 048
  3. LAMICTAL [Concomitant]
     Indication: BIPOLAR DISORDER
     Dosage: 200 MG IN AM, 100 MG IN PM
  4. GLUCOPHAGE [Concomitant]
     Indication: DIABETES MELLITUS
  5. HUMALOG [Concomitant]
     Indication: DIABETES MELLITUS
     Route: 058
  6. LANTUS [Concomitant]
     Indication: DIABETES MELLITUS
     Route: 058
  7. ZOCOR [Concomitant]
     Indication: BLOOD CHOLESTEROL INCREASED
  8. VASOTEC [Concomitant]
     Indication: HYPERTENSION
     Route: 048
  9. LEXAPRO [Concomitant]
     Indication: BIPOLAR DISORDER
  10. LEXAPRO [Concomitant]
     Indication: DEPRESSION
  11. POTASSIUM ACETATE [Concomitant]
     Indication: MINERAL SUPPLEMENTATION
     Dosage: 1 DOSE=1 PILL
  12. METFORMIN HCL [Concomitant]
     Indication: DIABETES MELLITUS
  13. ENALAPRIL [Concomitant]
     Indication: HYPERTENSION
  14. CLONAZEPAM [Concomitant]
     Indication: ANXIETY
  15. TYLENOL [Concomitant]
     Indication: PAIN

REACTIONS (4)
  - ATRIAL FIBRILLATION [None]
  - ELECTROCARDIOGRAM QT PROLONGED [None]
  - GRAND MAL CONVULSION [None]
  - NEUROLEPTIC MALIGNANT SYNDROME [None]
